FAERS Safety Report 4476467-X (Version None)
Quarter: 2004Q4

REPORT INFORMATION
  Report Type: 
  Country: None (occurrence: None)
  Receive Date: 20041014
  Receipt Date: 20041005
  Transmission Date: 20050328
  Serious: Yes (Other)
  Sender: FDA-Public Use
  Company Number: 04-10-1424

PATIENT
  Age: 50 Year
  Sex: Male

DRUGS (1)
  1. QUININE SULFATE [Suspect]
     Indication: MALARIA
     Dosage: ORAL
     Route: 048

REACTIONS (6)
  - CHEST DISCOMFORT [None]
  - DYSPHAGIA [None]
  - ODYNOPHAGIA [None]
  - OESOPHAGEAL ULCER [None]
  - OESOPHAGITIS [None]
  - SCAR [None]
